FAERS Safety Report 24399288 (Version 2)
Quarter: 2025Q3

REPORT INFORMATION
  Report Type: Spontaneous
  Country: CA (occurrence: CA)
  Receive Date: 20241004
  Receipt Date: 20250809
  Transmission Date: 20251020
  Serious: Yes (Death, Other)
  Sender: ALEXION PHARMACEUTICALS
  Company Number: CA-AstraZeneca-CH-00710492A

PATIENT
  Age: 54 Year
  Sex: Male

DRUGS (14)
  1. QUETIAPINE FUMARATE [Interacting]
     Active Substance: QUETIAPINE FUMARATE
     Indication: Bipolar disorder
  2. ATAZANAVIR [Interacting]
     Active Substance: ATAZANAVIR
     Indication: HIV infection
  3. ATAZANAVIR [Interacting]
     Active Substance: ATAZANAVIR
  4. CLONAZEPAM [Interacting]
     Active Substance: CLONAZEPAM
     Indication: Bipolar disorder
     Route: 065
  5. BUPROPION [Interacting]
     Active Substance: BUPROPION
     Indication: Bipolar disorder
  6. KALETRA [Interacting]
     Active Substance: LOPINAVIR\RITONAVIR
     Indication: HIV infection
  7. LAMIVUDINE [Interacting]
     Active Substance: LAMIVUDINE
     Indication: HIV infection
  8. RALTEGRAVIR [Interacting]
     Active Substance: RALTEGRAVIR
     Indication: HIV infection
  9. RALTEGRAVIR POTASSIUM [Interacting]
     Active Substance: RALTEGRAVIR POTASSIUM
     Indication: HIV infection
     Dosage: 1 DOSAGE FORM, BID
     Route: 065
  10. SERTRALINE HYDROCHLORIDE [Interacting]
     Active Substance: SERTRALINE HYDROCHLORIDE
     Indication: Bipolar disorder
     Dosage: UNK, BID
     Route: 065
  11. SUSTIVA [Interacting]
     Active Substance: EFAVIRENZ
     Indication: Product used for unknown indication
     Dosage: UNK, BID
  12. VALPROIC ACID [Interacting]
     Active Substance: VALPROIC ACID
     Indication: Bipolar disorder
     Route: 065
  13. ZOPICLONE [Interacting]
     Active Substance: ZOPICLONE
     Indication: Bipolar disorder
  14. ENFUVIRTIDE [Concomitant]
     Active Substance: ENFUVIRTIDE
     Indication: Product used for unknown indication
     Route: 065

REACTIONS (5)
  - Depression [Fatal]
  - Loss of personal independence in daily activities [Fatal]
  - Prescribed overdose [Fatal]
  - Drug interaction [Fatal]
  - Intentional product use issue [Fatal]
